FAERS Safety Report 8789283 (Version 2)
Quarter: 2012Q4

REPORT INFORMATION
  Report Type: Spontaneous
  Country: GB (occurrence: None)
  Receive Date: 20120905
  Receipt Date: 20120927
  Transmission Date: 20130627
  Serious: Yes (Hospitalization, Other)
  Sender: FDA-Public Use
  Company Number: GER/UKI/12/0025654

PATIENT
  Age: 28 Year
  Sex: Female

DRUGS (2)
  1. RISPERIDONE [Suspect]
     Indication: SCHIZOPHRENIA
     Dosage: 1 in 1 D
     Route: 048
     Dates: start: 201206
  2. RISPERDAL CONSTA [Suspect]
     Indication: PARANOID SCHIZOPHRENIA
     Dosage: 1 in 2 wk
     Route: 030
     Dates: start: 201205

REACTIONS (11)
  - Speech disorder [None]
  - Tardive dyskinesia [None]
  - Suicidal ideation [None]
  - Abnormal behaviour [None]
  - Mutism [None]
  - Schizophrenia [None]
  - Aggression [None]
  - Akathisia [None]
  - Impaired self-care [None]
  - Irritability [None]
  - Social avoidant behaviour [None]
